FAERS Safety Report 5827444-5 (Version None)
Quarter: 2008Q3

REPORT INFORMATION
  Report Type: 
  Country: None (occurrence: None)
  Receive Date: 20080725
  Receipt Date: 20080714
  Transmission Date: 20090109
  Serious: Yes (Other)
  Sender: FDA-Public Use
  Company Number: 2008BI007770

PATIENT
  Sex: Female

DRUGS (1)
  1. AVONEX [Suspect]
     Indication: MULTIPLE SCLEROSIS
     Dosage: IM
     Route: 030
     Dates: end: 20061001

REACTIONS (9)
  - ATROPHY [None]
  - CHOROIDAL NAEVUS [None]
  - DEPRESSION SUICIDAL [None]
  - EPILEPSY [None]
  - ERYTHEMA NODOSUM [None]
  - FALL [None]
  - INFECTIOUS MONONUCLEOSIS [None]
  - SPEECH DISORDER [None]
  - TREMOR [None]
